FAERS Safety Report 11801371 (Version 1)
Quarter: 2015Q4

REPORT INFORMATION
  Report Type: Spontaneous
  Country: GB (occurrence: GB)
  Receive Date: 20151204
  Receipt Date: 20151204
  Transmission Date: 20160305
  Serious: Yes (Other)
  Sender: FDA-Public Use
  Company Number: GB-BAYER-2015-475273

PATIENT
  Age: 43 Year
  Sex: Female
  Weight: 67.5 kg

DRUGS (3)
  1. MIRENA [Suspect]
     Active Substance: LEVONORGESTREL
     Indication: MENORRHAGIA
     Dosage: 20 MCG/24HR, CONT
     Route: 015
     Dates: start: 2012, end: 20131217
  2. VITAMIN D [Concomitant]
     Active Substance: CHOLECALCIFEROL
  3. MIRENA [Suspect]
     Active Substance: LEVONORGESTREL
     Indication: MENORRHAGIA
     Dosage: 20 MCG/24HR, CONT
     Route: 015
     Dates: start: 20110115, end: 2012

REACTIONS (4)
  - Arthralgia [Recovered/Resolved]
  - Rash [Recovering/Resolving]
  - Neck pain [Unknown]
  - Muscular weakness [Unknown]

NARRATIVE: CASE EVENT DATE: 201104
